FAERS Safety Report 7918731-5 (Version None)
Quarter: 2011Q4

REPORT INFORMATION
  Report Type: 
  Country: None (occurrence: None)
  Receive Date: 20111114
  Receipt Date: 20111102
  Transmission Date: 20120403
  Serious: Yes (Disabling, Other)
  Sender: FDA-Public Use
  Company Number: ACO_27682_2011

PATIENT
  Age: 54 Year
  Sex: Female
  Weight: 52.2 kg

DRUGS (3)
  1. AMPYRA [Suspect]
     Indication: GAIT DISTURBANCE
     Dosage: 10 MG, BID, ORAL, 10 MG, BID, ORAL
     Route: 048
     Dates: start: 20111101
  2. AMPYRA [Suspect]
     Indication: GAIT DISTURBANCE
     Dosage: 10 MG, BID, ORAL, 10 MG, BID, ORAL
     Route: 048
     Dates: start: 20110923, end: 20111101
  3. COPAXONE(GLATIRAMER) [Concomitant]

REACTIONS (8)
  - GRIP STRENGTH DECREASED [None]
  - BACK PAIN [None]
  - THERAPY CESSATION [None]
  - ABASIA [None]
  - MUSCULAR WEAKNESS [None]
  - GAIT DISTURBANCE [None]
  - SENSORY DISTURBANCE [None]
  - CONDITION AGGRAVATED [None]
